FAERS Safety Report 8120176-2 (Version None)
Quarter: 2012Q1

REPORT INFORMATION
  Report Type: 
  Country: None (occurrence: None)
  Receive Date: 20120207
  Receipt Date: 20120125
  Transmission Date: 20120608
  Serious: Yes (Hospitalization)
  Sender: FDA-Public Use
  Company Number: US-MYLANLABS-2012S1001913

PATIENT
  Age: 8 Year
  Sex: Male

DRUGS (1)
  1. AZITHROMYCIN [Suspect]
     Indication: OROPHARYNGEAL PAIN
     Route: 065

REACTIONS (2)
  - HYPOTENSION [None]
  - DRUG RASH WITH EOSINOPHILIA AND SYSTEMIC SYMPTOMS [None]
